FAERS Safety Report 21059179 (Version 2)
Quarter: 2022Q4

REPORT INFORMATION
  Report Type: Spontaneous
  Country: CA (occurrence: None)
  Receive Date: 20220708
  Receipt Date: 20221228
  Transmission Date: 20230112
  Serious: Yes (Other)
  Sender: FDA-Public Use
  Company Number: CA-PFIZER INC-2018281439

PATIENT
  Age: 70 Year
  Sex: Female
  Weight: 75 kg

DRUGS (73)
  1. METHOTREXATE [Suspect]
     Active Substance: METHOTREXATE
     Indication: Rheumatoid arthritis
     Route: 065
  2. METHOTREXATE [Suspect]
     Active Substance: METHOTREXATE
     Route: 058
  3. METHOTREXATE [Suspect]
     Active Substance: METHOTREXATE
     Dosage: MILIGRAM
     Route: 058
  4. METHOTREXATE [Suspect]
     Active Substance: METHOTREXATE
     Route: 065
  5. ENBREL [Suspect]
     Active Substance: ETANERCEPT
     Indication: Rheumatoid arthritis
     Dosage: 2 TIMES/WK
     Route: 058
     Dates: start: 2013
  6. ENBREL [Suspect]
     Active Substance: ETANERCEPT
     Dosage: 12.5 MG, EVERY 4-5DAYS
     Route: 065
     Dates: start: 2013, end: 201807
  7. ENBREL [Suspect]
     Active Substance: ETANERCEPT
     Dosage: 25 MG, WEEKLY
     Route: 058
     Dates: start: 20130813
  8. ENBREL [Suspect]
     Active Substance: ETANERCEPT
     Dosage: UP TO TWICE WEEKLY
     Route: 058
     Dates: start: 20130813
  9. ENBREL [Suspect]
     Active Substance: ETANERCEPT
     Route: 065
     Dates: start: 2006
  10. ENBREL [Suspect]
     Active Substance: ETANERCEPT
     Dosage: 2 TIMES/WK
     Route: 065
     Dates: start: 2013
  11. XELJANZ [Suspect]
     Active Substance: TOFACITINIB CITRATE
     Indication: Rheumatoid arthritis
     Route: 048
     Dates: start: 20180717
  12. XELJANZ [Suspect]
     Active Substance: TOFACITINIB CITRATE
     Route: 065
  13. XELJANZ [Suspect]
     Active Substance: TOFACITINIB CITRATE
     Route: 048
  14. PREGABALIN [Suspect]
     Active Substance: PREGABALIN
     Indication: Product used for unknown indication
     Route: 048
  15. PREGABALIN [Suspect]
     Active Substance: PREGABALIN
     Route: 065
  16. SULFASALAZINE [Suspect]
     Active Substance: SULFASALAZINE
     Indication: Rheumatoid arthritis
     Route: 065
  17. SULFASALAZINE [Suspect]
     Active Substance: SULFASALAZINE
     Route: 065
  18. RITUXIMAB [Suspect]
     Active Substance: RITUXIMAB
     Indication: Rheumatoid arthritis
     Route: 042
  19. CIMZIA [Suspect]
     Active Substance: CERTOLIZUMAB PEGOL
     Indication: Product used for unknown indication
     Route: 065
  20. ALTACE [Suspect]
     Active Substance: RAMIPRIL
     Indication: Product used for unknown indication
     Route: 065
  21. GOLD [Suspect]
     Active Substance: GOLD
     Indication: Product used for unknown indication
     Route: 065
  22. ACTEMRA [Suspect]
     Active Substance: TOCILIZUMAB
     Indication: Product used for unknown indication
     Route: 065
  23. ACTEMRA [Suspect]
     Active Substance: TOCILIZUMAB
     Route: 065
  24. NEORAL [Suspect]
     Active Substance: CYCLOSPORINE
     Indication: Rheumatoid arthritis
     Route: 048
  25. NEORAL [Suspect]
     Active Substance: CYCLOSPORINE
     Route: 058
  26. MYCOPHENOLIC ACID [Suspect]
     Active Substance: MYCOPHENOLIC ACID
     Indication: Product used for unknown indication
     Route: 065
  27. REMICADE [Suspect]
     Active Substance: INFLIXIMAB
     Indication: Rheumatoid arthritis
     Route: 042
  28. GOLD SODIUM THIOMALATE [Suspect]
     Active Substance: GOLD SODIUM THIOMALATE
     Indication: Product used for unknown indication
     Route: 051
  29. DESOXIMETASONE [Suspect]
     Active Substance: DESOXIMETASONE
     Indication: Product used for unknown indication
     Route: 065
  30. DESOXIMETASONE [Suspect]
     Active Substance: DESOXIMETASONE
     Route: 065
  31. ARAVA [Suspect]
     Active Substance: LEFLUNOMIDE
     Indication: Product used for unknown indication
     Route: 065
  32. ARAVA [Suspect]
     Active Substance: LEFLUNOMIDE
     Route: 048
  33. LEFLUNOMIDE [Suspect]
     Active Substance: LEFLUNOMIDE
     Indication: Product used for unknown indication
     Route: 065
  34. ORENCIA [Suspect]
     Active Substance: ABATACEPT
     Indication: Rheumatoid arthritis
     Route: 065
  35. ORENCIA [Suspect]
     Active Substance: ABATACEPT
     Route: 042
  36. HUMIRA [Suspect]
     Active Substance: ADALIMUMAB
     Indication: Rheumatoid arthritis
     Route: 058
  37. CYCLOSPORINE [Suspect]
     Active Substance: CYCLOSPORINE
     Indication: Rheumatoid arthritis
     Route: 065
  38. METFORMIN [Suspect]
     Active Substance: METFORMIN HYDROCHLORIDE
     Indication: Diabetes mellitus
     Route: 065
  39. METFORMIN [Suspect]
     Active Substance: METFORMIN HYDROCHLORIDE
     Route: 065
  40. METFORMIN [Suspect]
     Active Substance: METFORMIN HYDROCHLORIDE
     Route: 065
  41. .ALPHA.-TOCOPHEROL, D- [Suspect]
     Active Substance: .ALPHA.-TOCOPHEROL, D-
     Indication: Product used for unknown indication
     Route: 065
  42. HYDROXYCHLOROQUINE SULFATE [Suspect]
     Active Substance: HYDROXYCHLOROQUINE SULFATE
     Indication: Rheumatoid arthritis
     Route: 065
  43. HYDROXYCHLOROQUINE SULFATE [Suspect]
     Active Substance: HYDROXYCHLOROQUINE SULFATE
     Route: 065
  44. HYDROXYCHLOROQUINE SULFATE [Suspect]
     Active Substance: HYDROXYCHLOROQUINE SULFATE
     Route: 048
  45. PREDNISONE [Concomitant]
     Active Substance: PREDNISONE
     Route: 065
  46. PREDNISONE [Concomitant]
     Active Substance: PREDNISONE
     Route: 048
  47. PREDNISONE [Concomitant]
     Active Substance: PREDNISONE
     Route: 066
  48. INMUNOGLOBULINA [Concomitant]
     Dosage: (EVERY 3 WEEKS)
     Route: 042
  49. VITAMIN D [Concomitant]
     Active Substance: VITAMIN D NOS
     Route: 065
  50. OLMESARTAN MEDOXOMIL [Concomitant]
     Active Substance: OLMESARTAN MEDOXOMIL
     Route: 065
  51. VITAMIN C [Concomitant]
     Active Substance: ASCORBIC ACID
     Route: 065
  52. MAGNESIUM [Concomitant]
     Active Substance: MAGNESIUM
     Route: 065
  53. ASPIRIN [Concomitant]
     Active Substance: ASPIRIN
     Route: 065
  54. FISH OIL [Concomitant]
     Active Substance: FISH OIL
     Route: 065
  55. CALCIUM GLUCONATE [Concomitant]
     Active Substance: CALCIUM GLUCONATE
     Route: 065
  56. MOXIFLOXACIN HYDROCHLORIDE [Concomitant]
     Active Substance: MOXIFLOXACIN HYDROCHLORIDE
     Route: 065
  57. FLUCONAZOLE [Concomitant]
     Active Substance: FLUCONAZOLE
     Route: 065
  58. AVELOX [Concomitant]
     Active Substance: MOXIFLOXACIN HYDROCHLORIDE
     Route: 065
  59. PLAQUENIL [Concomitant]
     Active Substance: HYDROXYCHLOROQUINE SULFATE
     Route: 065
  60. COD LIVER OIL [Concomitant]
     Active Substance: COD LIVER OIL
     Route: 065
  61. ERGOCALCIFEROL [Concomitant]
     Active Substance: ERGOCALCIFEROL
     Route: 065
  62. ACETAMINOPHEN [Concomitant]
     Active Substance: ACETAMINOPHEN
     Route: 065
  63. CODEINE [Concomitant]
     Active Substance: CODEINE
     Dosage: UNK
     Route: 065
  64. DOCONEXENT [Concomitant]
     Active Substance: DOCONEXENT
     Route: 065
  65. ICOSAPENT [Concomitant]
     Active Substance: ICOSAPENT
     Dosage: UNK
     Route: 065
  66. LEVOTHYROXINE SODIUM [Concomitant]
     Active Substance: LEVOTHYROXINE SODIUM
     Route: 065
  67. MORPHINE [Concomitant]
     Active Substance: MORPHINE
     Route: 065
  68. PIROXICAM [Concomitant]
     Active Substance: PIROXICAM
     Dosage: UNK
     Route: 065
  69. POTASSIUM CHLORIDE [Concomitant]
     Active Substance: POTASSIUM CHLORIDE
     Route: 065
  70. ROSUVASTATIN CALCIUM [Concomitant]
     Active Substance: ROSUVASTATIN CALCIUM
     Route: 065
  71. HYDROXYCHLOROQUINE [Concomitant]
     Active Substance: HYDROXYCHLOROQUINE
     Route: 048
  72. CALCIUM [Concomitant]
     Active Substance: CALCIUM
     Route: 065
  73. ASPIRIN [Concomitant]
     Active Substance: ASPIRIN
     Route: 065

REACTIONS (61)
  - Overdose [Unknown]
  - Inappropriate schedule of product administration [Unknown]
  - Treatment failure [Not Recovered/Not Resolved]
  - Drug ineffective [Not Recovered/Not Resolved]
  - Off label use [Not Recovered/Not Resolved]
  - Contraindicated product administered [Not Recovered/Not Resolved]
  - Product use issue [Not Recovered/Not Resolved]
  - Rheumatoid arthritis [Not Recovered/Not Resolved]
  - Gamma-glutamyltransferase increased [Not Recovered/Not Resolved]
  - Blood alkaline phosphatase increased [Not Recovered/Not Resolved]
  - Cystitis [Not Recovered/Not Resolved]
  - Drug hypersensitivity [Not Recovered/Not Resolved]
  - Immunodeficiency [Not Recovered/Not Resolved]
  - Anaphylactic reaction [Not Recovered/Not Resolved]
  - Arthritis [Not Recovered/Not Resolved]
  - Multiple fractures [Not Recovered/Not Resolved]
  - Hypoaesthesia [Not Recovered/Not Resolved]
  - Arthropathy [Not Recovered/Not Resolved]
  - Hepatic enzyme abnormal [Not Recovered/Not Resolved]
  - Drug resistance [Not Recovered/Not Resolved]
  - Bronchitis [Not Recovered/Not Resolved]
  - Nasopharyngitis [Not Recovered/Not Resolved]
  - Herpes zoster [Not Recovered/Not Resolved]
  - Blood pressure increased [Not Recovered/Not Resolved]
  - Arthralgia [Not Recovered/Not Resolved]
  - Blood glucose increased [Not Recovered/Not Resolved]
  - C-reactive protein increased [Not Recovered/Not Resolved]
  - Cataract [Not Recovered/Not Resolved]
  - Diarrhoea [Not Recovered/Not Resolved]
  - Diverticulitis [Not Recovered/Not Resolved]
  - Colitis microscopic [Not Recovered/Not Resolved]
  - Drug-induced liver injury [Not Recovered/Not Resolved]
  - Eye disorder [Not Recovered/Not Resolved]
  - Glaucoma [Not Recovered/Not Resolved]
  - Hernia [Not Recovered/Not Resolved]
  - Insomnia [Not Recovered/Not Resolved]
  - Mobility decreased [Not Recovered/Not Resolved]
  - Joint swelling [Not Recovered/Not Resolved]
  - Loss of personal independence in daily activities [Not Recovered/Not Resolved]
  - Multiple allergies [Not Recovered/Not Resolved]
  - Musculoskeletal pain [Not Recovered/Not Resolved]
  - Myelosuppression [Not Recovered/Not Resolved]
  - Pain in extremity [Not Recovered/Not Resolved]
  - Peripheral swelling [Not Recovered/Not Resolved]
  - Platelet count decreased [Not Recovered/Not Resolved]
  - Psoriatic arthropathy [Not Recovered/Not Resolved]
  - Rash [Not Recovered/Not Resolved]
  - Red blood cell sedimentation rate increased [Not Recovered/Not Resolved]
  - Rheumatic disorder [Not Recovered/Not Resolved]
  - Sciatica [Not Recovered/Not Resolved]
  - Sinusitis [Not Recovered/Not Resolved]
  - Skin reaction [Not Recovered/Not Resolved]
  - Synovitis [Not Recovered/Not Resolved]
  - Weight increased [Not Recovered/Not Resolved]
  - White blood cell count decreased [Not Recovered/Not Resolved]
  - C-reactive protein abnormal [Not Recovered/Not Resolved]
  - Blood immunoglobulin M increased [Not Recovered/Not Resolved]
  - Blood immunoglobulin A decreased [Not Recovered/Not Resolved]
  - Blood immunoglobulin G increased [Not Recovered/Not Resolved]
  - Alanine aminotransferase increased [Not Recovered/Not Resolved]
  - Prescribed underdose [Not Recovered/Not Resolved]

NARRATIVE: CASE EVENT DATE: 20180507
